FAERS Safety Report 10328148 (Version 6)
Quarter: 2015Q2

REPORT INFORMATION
  Report Type: Spontaneous
  Country: US (occurrence: US)
  Receive Date: 20140721
  Receipt Date: 20150618
  Transmission Date: 20150821
  Serious: Yes (Other)
  Sender: FDA-Public Use
  Company Number: US-PFIZER INC-2014199742

PATIENT
  Age: 67 Year
  Sex: Female
  Weight: 78 kg

DRUGS (5)
  1. ROXICODONE [Concomitant]
     Active Substance: OXYCODONE HYDROCHLORIDE
     Dosage: UNK
  2. CYMBALTA [Concomitant]
     Active Substance: DULOXETINE HYDROCHLORIDE
     Dosage: UNK
  3. LYRICA [Concomitant]
     Active Substance: PREGABALIN
     Dosage: UNK
  4. XELJANZ [Suspect]
     Active Substance: TOFACITINIB CITRATE
     Indication: RHEUMATOID ARTHRITIS
     Dosage: 5 MG, 2X/DAY
     Route: 048
     Dates: start: 20140618, end: 20150524
  5. MS CONTIN [Concomitant]
     Active Substance: MORPHINE SULFATE
     Indication: PAIN
     Dosage: 60 MG, 2X/DAY

REACTIONS (15)
  - Femur fracture [Unknown]
  - Fall [Unknown]
  - Chondropathy [Unknown]
  - Type 1 diabetes mellitus [Unknown]
  - Dysuria [Not Recovered/Not Resolved]
  - Dizziness [Not Recovered/Not Resolved]
  - Condition aggravated [Recovering/Resolving]
  - Arthropathy [Unknown]
  - Nausea [Not Recovered/Not Resolved]
  - Arthralgia [Recovering/Resolving]
  - Visual impairment [Recovered/Resolved]
  - Bone density decreased [Unknown]
  - Ligament sprain [Recovered/Resolved]
  - Abdominal pain upper [Unknown]
  - Faeces discoloured [Unknown]

NARRATIVE: CASE EVENT DATE: 20140624
